FAERS Safety Report 15122684 (Version 2)
Quarter: 2018Q3

REPORT INFORMATION
  Report Type: Report from Study
  Country: PL (occurrence: PL)
  Receive Date: 20180709
  Receipt Date: 20180917
  Transmission Date: 20181010
  Serious: Yes (Other)
  Sender: FDA-Public Use
  Company Number: PL-CHIESI USA INC.-PL-2018CHI000178

PATIENT
  Age: 0 Year
  Sex: Male
  Weight: 1.65 kg

DRUGS (3)
  1. CUROSURF [Suspect]
     Active Substance: PORACTANT ALFA
     Dosage: 1.5 ML, SINGLE
     Route: 039
     Dates: start: 20180619, end: 20180619
  2. CAFFEINE CITRATE. [Concomitant]
     Active Substance: CAFFEINE CITRATE
     Indication: PRODUCT USED FOR UNKNOWN INDICATION
     Dosage: UNK
     Dates: start: 20180618, end: 20180725
  3. CUROSURF [Suspect]
     Active Substance: PORACTANT ALFA
     Indication: NEONATAL RESPIRATORY DISTRESS SYNDROME
     Dosage: 1.5 ML, SINGLE
     Route: 039
     Dates: start: 20180618, end: 20180618

REACTIONS (3)
  - Inappropriate schedule of drug administration [Recovered/Resolved]
  - Neonatal hypoxia [Recovered/Resolved]
  - Bradycardia neonatal [Recovered/Resolved]

NARRATIVE: CASE EVENT DATE: 201806
